FAERS Safety Report 20164587 (Version 1)
Quarter: 2021Q4

REPORT INFORMATION
  Report Type: Spontaneous
  Country: SA (occurrence: SA)
  Receive Date: 20211209
  Receipt Date: 20211209
  Transmission Date: 20220304
  Serious: Yes (Other)
  Sender: FDA-Public Use
  Company Number: SA-MACLEODS PHARMACEUTICALS US LTD-MAC2021033644

PATIENT

DRUGS (1)
  1. TADALAFIL [Suspect]
     Active Substance: TADALAFIL
     Indication: Sexual dysfunction
     Dosage: UNK  (ADULTERATED HONEY MIXED WITH TADALAFIL POWDER)
     Route: 048

REACTIONS (2)
  - Chorioretinopathy [Recovered/Resolved]
  - Adulterated product [Unknown]
